FAERS Safety Report 6863933-2 (Version None)
Quarter: 2010Q3

REPORT INFORMATION
  Report Type: 
  Country: None (occurrence: None)
  Receive Date: 20100721
  Receipt Date: 20080729
  Transmission Date: 20110219
  Serious: No
  Sender: FDA-Public Use
  Company Number: US-PFIZER INC-2008021760

PATIENT
  Sex: Male
  Weight: 81.8 kg

DRUGS (3)
  1. CHANTIX [Suspect]
     Indication: SMOKING CESSATION THERAPY
     Dates: start: 20080201
  2. PLAVIX [Concomitant]
     Indication: CARDIAC DISORDER
  3. CARDIAC THERAPY [Concomitant]
     Indication: CARDIAC DISORDER

REACTIONS (2)
  - NAUSEA [None]
  - VOMITING [None]
